FAERS Safety Report 19772205 (Version 1)
Quarter: 2021Q3

REPORT INFORMATION
  Report Type: Spontaneous
  Country: US (occurrence: US)
  Receive Date: 20210830
  Receipt Date: 20210830
  Transmission Date: 20211014
  Serious: Yes (Hospitalization)
  Sender: FDA-Public Use
  Company Number: None

PATIENT
  Sex: Female

DRUGS (2)
  1. AMBRISENTAN 10 MG TAB [Suspect]
     Active Substance: AMBRISENTAN
     Indication: PULMONARY ARTERIAL HYPERTENSION
     Dosage: TAKE 1 TABLET BY MOUTH DAILY
     Route: 048
     Dates: start: 20200815
  2. GABAPENTIN CAP [Concomitant]
     Active Substance: GABAPENTIN

REACTIONS (1)
  - Hospitalisation [None]
